FAERS Safety Report 6573051-9 (Version None)
Quarter: 2010Q1

REPORT INFORMATION
  Report Type: 
  Country: None (occurrence: None)
  Receive Date: 20100208
  Receipt Date: 20100129
  Transmission Date: 20100710
  Serious: Yes (Disabling)
  Sender: FDA-Public Use
  Company Number: IE-BAYER-200936945GPV

PATIENT
  Age: 50 Year
  Sex: Female

DRUGS (2)
  1. MIRENA [Suspect]
     Indication: DYSFUNCTIONAL UTERINE BLEEDING
     Route: 015
     Dates: start: 20090408, end: 20090810
  2. ROZEX [Concomitant]
     Indication: ROSACEA

REACTIONS (2)
  - BLINDNESS UNILATERAL [None]
  - CATARACT [None]
